FAERS Safety Report 20840950 (Version 1)
Quarter: 2022Q2

REPORT INFORMATION
  Report Type: Spontaneous
  Country: DE (occurrence: DE)
  Receive Date: 20220517
  Receipt Date: 20220517
  Transmission Date: 20220721
  Serious: Yes (Death)
  Sender: FDA-Public Use
  Company Number: DE-PFIZER INC-202200710830

PATIENT

DRUGS (2)
  1. TAFAMIDIS MEGLUMINE [Suspect]
     Active Substance: TAFAMIDIS MEGLUMINE
  2. TAFAMIDIS [Suspect]
     Active Substance: TAFAMIDIS

REACTIONS (1)
  - Death [Fatal]
